FAERS Safety Report 4379706-9 (Version None)
Quarter: 2004Q2

REPORT INFORMATION
  Report Type: 
  Country: None (occurrence: None)
  Receive Date: 20040617
  Receipt Date: 20040601
  Transmission Date: 20050107
  Serious: Yes (Hospitalization)
  Sender: FDA-Public Use
  Company Number: 368629

PATIENT
  Age: 68 Year
  Sex: Male

DRUGS (22)
  1. CARVEDILOL [Suspect]
     Dosage: 12.25MG PER DAY
  2. OXALIPLATIN [Suspect]
     Dates: start: 20040209
  3. FLUOROURACIL [Suspect]
     Indication: ADENOCARCINOMA
     Dates: start: 20040209
  4. LEUCOVORIN [Suspect]
     Indication: ADENOCARCINOMA
     Dates: start: 20040209
  5. BLINDED TRIAL MEDICATION [Concomitant]
     Indication: ADENOCARCINOMA
     Dosage: 1250MG PER DAY
     Dates: start: 20040209
  6. LASIX [Concomitant]
  7. DIGOXIN [Concomitant]
  8. LISINOPRIL [Concomitant]
  9. MEGACE [Concomitant]
  10. METFORMIN HCL [Concomitant]
  11. DEMADEX [Concomitant]
  12. THYROID TAB [Concomitant]
  13. ACTOS [Concomitant]
  14. LIPITOR [Concomitant]
  15. ZETIA [Concomitant]
  16. ASPIRIN [Concomitant]
  17. MAGNESIUM OXIDE [Concomitant]
  18. GLYBURIDE [Concomitant]
  19. CELEBREX [Concomitant]
  20. LISINOPRIL [Concomitant]
  21. POTASSIUM CHLORIDE [Concomitant]
  22. MULTI-VITAMINS [Concomitant]

REACTIONS (8)
  - ASTHENIA [None]
  - ATRIAL FIBRILLATION [None]
  - BLOOD CREATININE INCREASED [None]
  - BUNDLE BRANCH BLOCK LEFT [None]
  - FATIGUE [None]
  - SINUS TACHYCARDIA [None]
  - SYNCOPE [None]
  - WEIGHT DECREASED [None]
